FAERS Safety Report 8801180 (Version 1)
Quarter: 2012Q4

REPORT INFORMATION
  Report Type: 
  Country: GB (occurrence: GB)
  Receive Date: 20120921
  Receipt Date: 20120921
  Transmission Date: 20130627
  Serious: Yes (Other)
  Sender: FDA-Public Use
  Company Number: GB-TEVA-358611ISR

PATIENT
  Age: 58 Year
  Sex: Female

DRUGS (1)
  1. AMLODIPINE [Suspect]
     Route: 065

REACTIONS (1)
  - Linear IgA disease [Recovered/Resolved]
